FAERS Safety Report 14874545 (Version 1)
Quarter: 2018Q2

REPORT INFORMATION
  Report Type: Report from Study
  Country: US (occurrence: US)
  Receive Date: 20180510
  Receipt Date: 20180510
  Transmission Date: 20180711
  Serious: Yes (Hospitalization, Other)
  Sender: FDA-Public Use
  Company Number: US-ASPEN-GLO2017US003230

PATIENT
  Age: 14 Year
  Sex: Male
  Weight: 78.5 kg

DRUGS (8)
  1. RUXOLITINIB [Suspect]
     Active Substance: RUXOLITINIB
     Indication: CHEMOTHERAPY CYTOKINE PROPHYLAXIS
     Dosage: 55 MG, BID
     Route: 048
     Dates: start: 20161007, end: 20170424
  2. VINCRISTINE [Suspect]
     Active Substance: VINCRISTINE
     Indication: CHEMOTHERAPY
     Dosage: 2 MG, SINGLE
     Route: 042
     Dates: start: 20161118, end: 20170425
  3. TIOGUANINE [Suspect]
     Active Substance: THIOGUANINE ANHYDROUS
     Indication: CHEMOTHERAPY
     Dosage: 200 MG, QD
     Route: 048
     Dates: start: 20170411, end: 20170424
  4. RUXOLITINIB [Suspect]
     Active Substance: RUXOLITINIB
     Indication: ACUTE LYMPHOCYTIC LEUKAEMIA
  5. PEGASPARGASE [Suspect]
     Active Substance: PEGASPARGASE
     Indication: CHEMOTHERAPY
     Dosage: 4725 DF, SINGLE
     Route: 042
     Dates: start: 20161021, end: 20170425
  6. CYCLOPHOSPHAMIDE. [Suspect]
     Active Substance: CYCLOPHOSPHAMIDE
     Indication: CHEMOTHERAPY
     Dosage: 1880 MG
     Route: 065
     Dates: start: 20161007
  7. METHOTREXATE. [Suspect]
     Active Substance: METHOTREXATE
     Indication: CHEMOTHERAPY
     Dosage: 15 MG
     Route: 037
     Dates: start: 20161007
  8. CYTARABINE. [Suspect]
     Active Substance: CYTARABINE
     Indication: CHEMOTHERAPY
     Dosage: 141 MG
     Route: 042
     Dates: start: 20161007

REACTIONS (1)
  - Febrile neutropenia [Recovered/Resolved]

NARRATIVE: CASE EVENT DATE: 20170430
